FAERS Safety Report 26143074 (Version 1)
Quarter: 2025Q4

REPORT INFORMATION
  Report Type: Spontaneous
  Country: US (occurrence: US)
  Receive Date: 20251211
  Receipt Date: 20251211
  Transmission Date: 20260118
  Serious: No
  Sender: ALVOGEN
  Company Number: US-ALVOGEN-2025096301

PATIENT
  Sex: Female

DRUGS (1)
  1. LEVOTHYROXINE [Suspect]
     Active Substance: LEVOTHYROXINE
     Indication: Product used for unknown indication
     Dosage: TAKING IT FROM 4 YEARS

REACTIONS (5)
  - Food allergy [Unknown]
  - Malaise [Unknown]
  - Fatigue [Unknown]
  - Alopecia [Unknown]
  - Drug ineffective [Unknown]
